FAERS Safety Report 5314593-3 (Version None)
Quarter: 2007Q2

REPORT INFORMATION
  Report Type: 
  Country: None (occurrence: None)
  Receive Date: 20070427
  Receipt Date: 20070416
  Transmission Date: 20071010
  Serious: Yes (Hospitalization)
  Sender: FDA-Public Use
  Company Number: B0467852A

PATIENT
  Sex: 0

DRUGS (1)
  1. MELPHALAN (FORMULATION UNKNOWN) (GENERIC) (MELPHALAN) [Suspect]

REACTIONS (1)
  - POST PROCEDURAL HAEMORRHAGE [None]
